FAERS Safety Report 23748140 (Version 3)
Quarter: 2025Q4

REPORT INFORMATION
  Report Type: Spontaneous
  Country: US (occurrence: US)
  Receive Date: 20240416
  Receipt Date: 20251020
  Transmission Date: 20260118
  Serious: No
  Sender: PFIZER
  Company Number: US-PFIZER INC-PV202300156643

PATIENT
  Age: 72 Year
  Sex: Female
  Weight: 92.789 kg

DRUGS (1)
  1. IBRANCE [Suspect]
     Active Substance: PALBOCICLIB
     Indication: Breast cancer female
     Dosage: 75 MG, CYCLIC (TAKE ONCE DAILY ON DAYS 1 THROUGH 21 OF A 28- DAY)
     Route: 048

REACTIONS (4)
  - Brain fog [Unknown]
  - Seasonal allergy [Unknown]
  - Anaemia [Unknown]
  - Constipation [Unknown]

NARRATIVE: CASE EVENT DATE: 20240411
